FAERS Safety Report 21988743 (Version 1)
Quarter: 2023Q1

REPORT INFORMATION
  Report Type: Spontaneous
  Country: US (occurrence: US)
  Receive Date: 20230214
  Receipt Date: 20230214
  Transmission Date: 20230418
  Serious: No
  Sender: FDA-Public Use
  Company Number: US-BRISTOL-MYERS SQUIBB COMPANY-2023-021252

PATIENT
  Age: 49 Year
  Sex: Female

DRUGS (2)
  1. AZACITIDINE [Suspect]
     Active Substance: AZACITIDINE
     Indication: Acute myeloid leukaemia
     Dosage: REFER TO NARRATIVEINCLUDECLINICAL
     Route: 048
     Dates: start: 202106
  2. AZACITIDINE [Suspect]
     Active Substance: AZACITIDINE
     Dosage: REFER TO NARRATIVEINCLUDECLINICAL
     Route: 048
     Dates: start: 20220901

REACTIONS (2)
  - Nausea [Unknown]
  - Off label use [Unknown]

NARRATIVE: CASE EVENT DATE: 20210601
